FAERS Safety Report 8178587-5 (Version None)
Quarter: 2012Q1

REPORT INFORMATION
  Report Type: 
  Country: None (occurrence: None)
  Receive Date: 20120301
  Receipt Date: 20120224
  Transmission Date: 20120608
  Serious: Yes (Life-Threatening, Hospitalization)
  Sender: FDA-Public Use
  Company Number: BR-ASTRAZENECA-2011SE45161

PATIENT
  Age: 75 Year
  Sex: Female

DRUGS (7)
  1. AMITRIPTYLINE HCL [Concomitant]
     Route: 048
  2. ATACAND HCT [Suspect]
     Indication: HYPERTENSION
     Dosage: 16/12.5 MG
     Route: 048
  3. ATACAND HCT [Suspect]
     Dosage: 8/12.5 MG
     Route: 048
  4. ATACAND [Suspect]
     Route: 048
  5. GABAPENTIN [Concomitant]
     Route: 048
  6. ATACAND [Suspect]
     Indication: HYPERTENSION
     Route: 048
     Dates: end: 20120201
  7. CARBAMAZEPINE [Concomitant]
     Indication: HERPES ZOSTER
     Route: 048

REACTIONS (2)
  - DRUG INTOLERANCE [None]
  - CARDIO-RESPIRATORY ARREST [None]
